FAERS Safety Report 4786993-1 (Version None)
Quarter: 2005Q4

REPORT INFORMATION
  Report Type: 
  Country: None (occurrence: None)
  Receive Date: 20051004
  Receipt Date: 20050921
  Transmission Date: 20060501
  Serious: Yes (Hospitalization)
  Sender: FDA-Public Use
  Company Number: JP-JPN-A20052250

PATIENT

DRUGS (1)
  1. PAXIL [Suspect]
     Route: 048

REACTIONS (2)
  - INCORRECT DOSE ADMINISTERED [None]
  - SUICIDE ATTEMPT [None]
